FAERS Safety Report 25504705 (Version 1)
Quarter: 2025Q3

REPORT INFORMATION
  Report Type: Report from Study
  Country: US (occurrence: US)
  Receive Date: 20250702
  Receipt Date: 20250702
  Transmission Date: 20251021
  Serious: Yes (Death, Hospitalization)
  Sender: MYLAN
  Company Number: US-MYLANLABS-2025M1055014

PATIENT
  Age: 43 Day
  Sex: Male

DRUGS (24)
  1. NOREPINEPHRINE [Suspect]
     Active Substance: NOREPINEPHRINE
     Indication: Capillary leak syndrome
  2. NOREPINEPHRINE [Suspect]
     Active Substance: NOREPINEPHRINE
     Route: 065
  3. NOREPINEPHRINE [Suspect]
     Active Substance: NOREPINEPHRINE
     Route: 065
  4. NOREPINEPHRINE [Suspect]
     Active Substance: NOREPINEPHRINE
  5. AMINOPHYLLINE [Suspect]
     Active Substance: AMINOPHYLLINE
     Indication: Capillary leak syndrome
  6. AMINOPHYLLINE [Suspect]
     Active Substance: AMINOPHYLLINE
  7. AMINOPHYLLINE [Suspect]
     Active Substance: AMINOPHYLLINE
     Route: 042
  8. AMINOPHYLLINE [Suspect]
     Active Substance: AMINOPHYLLINE
     Route: 042
  9. AMINOPHYLLINE [Suspect]
     Active Substance: AMINOPHYLLINE
     Dosage: 2 MILLIGRAM/KILOGRAM, Q8H
  10. AMINOPHYLLINE [Suspect]
     Active Substance: AMINOPHYLLINE
     Dosage: 2 MILLIGRAM/KILOGRAM, Q8H
  11. AMINOPHYLLINE [Suspect]
     Active Substance: AMINOPHYLLINE
     Dosage: 2 MILLIGRAM/KILOGRAM, Q8H
     Route: 042
  12. AMINOPHYLLINE [Suspect]
     Active Substance: AMINOPHYLLINE
     Dosage: 2 MILLIGRAM/KILOGRAM, Q8H
     Route: 042
  13. HUMAN IMMUNOGLOBULIN G [Suspect]
     Active Substance: HUMAN IMMUNOGLOBULIN G
     Indication: Capillary leak syndrome
     Dosage: 1G/KG FOR 3 DAYS, QD
  14. HUMAN IMMUNOGLOBULIN G [Suspect]
     Active Substance: HUMAN IMMUNOGLOBULIN G
     Dosage: 1G/KG FOR 3 DAYS, QD
     Route: 042
  15. HUMAN IMMUNOGLOBULIN G [Suspect]
     Active Substance: HUMAN IMMUNOGLOBULIN G
     Dosage: 1G/KG FOR 3 DAYS, QD
     Route: 042
  16. HUMAN IMMUNOGLOBULIN G [Suspect]
     Active Substance: HUMAN IMMUNOGLOBULIN G
     Dosage: 1G/KG FOR 3 DAYS, QD
  17. DOPAMINE [Suspect]
     Active Substance: DOPAMINE HYDROCHLORIDE
     Indication: Capillary leak syndrome
  18. DOPAMINE [Suspect]
     Active Substance: DOPAMINE HYDROCHLORIDE
     Route: 065
  19. DOPAMINE [Suspect]
     Active Substance: DOPAMINE HYDROCHLORIDE
     Route: 065
  20. DOPAMINE [Suspect]
     Active Substance: DOPAMINE HYDROCHLORIDE
  21. VASOPRESSIN [Suspect]
     Active Substance: VASOPRESSIN
     Indication: Capillary leak syndrome
  22. VASOPRESSIN [Suspect]
     Active Substance: VASOPRESSIN
     Route: 065
  23. VASOPRESSIN [Suspect]
     Active Substance: VASOPRESSIN
     Route: 065
  24. VASOPRESSIN [Suspect]
     Active Substance: VASOPRESSIN

REACTIONS (2)
  - Drug ineffective [Fatal]
  - Off label use [Unknown]
